FAERS Safety Report 8474958-8 (Version None)
Quarter: 2012Q2

REPORT INFORMATION
  Report Type: 
  Country: None (occurrence: None)
  Receive Date: 20120628
  Receipt Date: 20120625
  Transmission Date: 20120825
  Serious: Yes (Hospitalization, Other)
  Sender: FDA-Public Use
  Company Number: PHHY2011EC91469

PATIENT
  Sex: Female

DRUGS (2)
  1. EXFORGE [Suspect]
     Dosage: 1 DF (160/5MG) DAILY
     Route: 048
  2. EXFORGE [Suspect]
     Indication: HYPERTENSION
     Dosage: 1 DF (160/5 MG) DAILY
     Route: 048
     Dates: start: 20090101, end: 20120501

REACTIONS (5)
  - HYPERGLYCAEMIA [None]
  - DIABETES MELLITUS [None]
  - HYPOTHYROIDISM [None]
  - SWELLING [None]
  - CORNEAL GRAFT REJECTION [None]
